FAERS Safety Report 25144752 (Version 1)
Quarter: 2025Q2

REPORT INFORMATION
  Report Type: Spontaneous
  Country: SG (occurrence: SG)
  Receive Date: 20250401
  Receipt Date: 20250401
  Transmission Date: 20250717
  Serious: Yes (Hospitalization, Other)
  Sender: AZURITY PHARMACEUTICALS
  Company Number: SG-AZURITY PHARMACEUTICALS, INC.-AZR202503-000891

PATIENT
  Age: 83 Year
  Sex: Female

DRUGS (1)
  1. METHOTREXATE [Suspect]
     Active Substance: METHOTREXATE
     Indication: Segmented hyalinising vasculitis
     Dosage: 12.5 MILLIGRAM, WEEKLY FOR 3.5 MONTHS
     Route: 065

REACTIONS (7)
  - Ulcer haemorrhage [Recovered/Resolved]
  - Skin erosion [Recovered/Resolved]
  - Toxicity to various agents [Recovered/Resolved]
  - Pancytopenia [Recovered/Resolved]
  - Acute kidney injury [Recovered/Resolved]
  - Herpes simplex [Recovered/Resolved]
  - Product use in unapproved indication [Unknown]
